FAERS Safety Report 5581077-7 (Version None)
Quarter: 2007Q4

REPORT INFORMATION
  Report Type: 
  Country: None (occurrence: None)
  Receive Date: 20071227
  Receipt Date: 20070515
  Transmission Date: 20080405
  Serious: Yes (Death, Life-Threatening, Hospitalization, Disabling)
  Sender: FDA-Public Use
  Company Number: 20073743

PATIENT
  Sex: Female

DRUGS (3)
  1. LIORESAL [Suspect]
     Indication: MUSCLE SPASTICITY
     Dosage: 50 MCG,DAILY,INTRATHECAL
     Route: 037
     Dates: start: 20070417, end: 20070419
  2. VALIUM [Concomitant]
  3. TIZANIDINE HCL [Concomitant]

REACTIONS (6)
  - BRADYCARDIA [None]
  - BRAIN DAMAGE [None]
  - CARDIO-RESPIRATORY ARREST [None]
  - PNEUMONIA ASPIRATION [None]
  - UNRESPONSIVE TO STIMULI [None]
  - VOMITING [None]
